FAERS Safety Report 17140751 (Version 1)
Quarter: 2019Q4

REPORT INFORMATION
  Report Type: Spontaneous
  Country: DE (occurrence: DE)
  Receive Date: 20191211
  Receipt Date: 20191211
  Transmission Date: 20200122
  Serious: Yes (Other)
  Sender: FDA-Public Use
  Company Number: DE-PFIZER INC-2019529707

PATIENT
  Age: 43 Year
  Sex: Male

DRUGS (13)
  1. CYCLOPHOSPHAMIDE. [Concomitant]
     Active Substance: CYCLOPHOSPHAMIDE
     Indication: B PRECURSOR TYPE ACUTE LEUKAEMIA
     Dosage: UNK, CYCLIC
  2. ANTITHYMOCYTE IMMUNOGLOBULIN [Concomitant]
     Active Substance: THYMOCYTE IMMUNE GLOBULIN NOS
     Indication: BONE MARROW CONDITIONING REGIMEN
     Dosage: UNK
  3. BLINATUMOMAB [Concomitant]
     Active Substance: BLINATUMOMAB
     Indication: B PRECURSOR TYPE ACUTE LEUKAEMIA
     Dosage: UNK, CYCLIC
  4. CASPOFUNGIN [Suspect]
     Active Substance: CASPOFUNGIN
     Indication: TRANSPLANT FAILURE
     Dosage: UNK
  5. CASPOFUNGIN [Suspect]
     Active Substance: CASPOFUNGIN
     Indication: APLASIA
  6. POSACONAZOLE [Suspect]
     Active Substance: POSACONAZOLE
     Indication: TRANSPLANT FAILURE
     Dosage: UNK
  7. CYCLOPHOSPHAMIDE. [Concomitant]
     Active Substance: CYCLOPHOSPHAMIDE
     Indication: BONE MARROW CONDITIONING REGIMEN
  8. VINCRISTINE [Concomitant]
     Active Substance: VINCRISTINE
     Indication: B PRECURSOR TYPE ACUTE LEUKAEMIA
     Dosage: UNK, CYCLIC
  9. DOXORUBICIN [Concomitant]
     Active Substance: DOXORUBICIN
     Indication: B PRECURSOR TYPE ACUTE LEUKAEMIA
     Dosage: UNK, CYCLIC
  10. VORICONAZOLE. [Suspect]
     Active Substance: VORICONAZOLE
     Indication: TRANSPLANT FAILURE
     Dosage: UNK
  11. DEXAMETHASONE. [Concomitant]
     Active Substance: DEXAMETHASONE
     Indication: B PRECURSOR TYPE ACUTE LEUKAEMIA
     Dosage: UNK, CYCLIC
  12. VORICONAZOLE. [Suspect]
     Active Substance: VORICONAZOLE
     Indication: APLASIA
  13. POSACONAZOLE [Suspect]
     Active Substance: POSACONAZOLE
     Indication: APLASIA

REACTIONS (2)
  - Cytomegalovirus infection [Recovering/Resolving]
  - Drug ineffective [Recovering/Resolving]
